FAERS Safety Report 15769364 (Version 1)
Quarter: 2018Q4

REPORT INFORMATION
  Report Type: Spontaneous
  Country: US (occurrence: US)
  Receive Date: 20181224
  Receipt Date: 20181224
  Transmission Date: 20190205
  Serious: No
  Sender: FDA-Public Use
  Company Number: None

PATIENT

DRUGS (2)
  1. BRIDION [Suspect]
     Active Substance: SUGAMMADEX
     Dosage: VIAL
  2. BRIDION [Suspect]
     Active Substance: SUGAMMADEX
     Dosage: VIAL

REACTIONS (1)
  - Product barcode issue [None]
